FAERS Safety Report 14554697 (Version 1)
Quarter: 2018Q1

REPORT INFORMATION
  Report Type: Spontaneous
  Country: US (occurrence: US)
  Receive Date: 20180220
  Receipt Date: 20180220
  Transmission Date: 20180509
  Serious: No
  Sender: FDA-Public Use
  Company Number: US-IPSEN BIOPHARMACEUTICALS, INC.-2017-15846

PATIENT
  Age: 44 Year
  Sex: Female

DRUGS (3)
  1. SYNTHROID [Concomitant]
     Active Substance: LEVOTHYROXINE SODIUM
  2. LISINOPRIL. [Concomitant]
     Active Substance: LISINOPRIL
  3. DYSPORT [Suspect]
     Active Substance: ABOBOTULINUMTOXINA
     Indication: SKIN WRINKLING
     Dosage: 7 UNITS
     Route: 065
     Dates: start: 20171030, end: 20171030

REACTIONS (5)
  - Drug ineffective [Unknown]
  - Product preparation error [Unknown]
  - Product storage error [Unknown]
  - Off label use [Unknown]
  - Wrong technique in product usage process [Unknown]
